FAERS Safety Report 6473110-5 (Version None)
Quarter: 2009Q4

REPORT INFORMATION
  Report Type: 
  Country: None (occurrence: None)
  Receive Date: 20091204
  Receipt Date: 20080829
  Transmission Date: 20100525
  Serious: Yes (Hospitalization)
  Sender: FDA-Public Use
  Company Number: JP-ELI_LILLY_AND_COMPANY-JP200809000126

PATIENT
  Age: 59 Year
  Sex: Male
  Weight: 50 kg

DRUGS (3)
  1. GEMZAR [Suspect]
     Indication: PANCREATIC CARCINOMA NON-RESECTABLE
     Dosage: 1000 MG/M2, UNK
     Route: 042
     Dates: start: 20060106
  2. LOXOPROFEN [Concomitant]
     Indication: CANCER PAIN
     Dosage: 60 MG, 3/D
     Route: 048
  3. FENTANYL [Concomitant]
     Indication: CANCER PAIN
     Dosage: 7.5 MG, DAILY (1/D)
     Route: 062

REACTIONS (4)
  - BACK PAIN [None]
  - CHEST PAIN [None]
  - JAUNDICE CHOLESTATIC [None]
  - OESOPHAGEAL CANDIDIASIS [None]
